FAERS Safety Report 14697728 (Version 1)
Quarter: 2018Q1

REPORT INFORMATION
  Report Type: Spontaneous
  Country: US (occurrence: US)
  Receive Date: 20180330
  Receipt Date: 20180330
  Transmission Date: 20180509
  Serious: No
  Sender: FDA-Public Use
  Company Number: US-SA-2017SA268835

PATIENT
  Age: 38 Year
  Sex: Female
  Weight: 99 kg

DRUGS (5)
  1. ALLEGRA ALLERGY [Suspect]
     Active Substance: FEXOFENADINE HYDROCHLORIDE
     Indication: PROPHYLAXIS
     Route: 048
     Dates: start: 20180105
  2. ALLEGRA ALLERGY [Suspect]
     Active Substance: FEXOFENADINE HYDROCHLORIDE
     Indication: DERMATITIS CONTACT
     Route: 048
     Dates: start: 20171015, end: 20171228
  3. ALLEGRA ALLERGY [Suspect]
     Active Substance: FEXOFENADINE HYDROCHLORIDE
     Indication: PROPHYLAXIS
     Route: 048
     Dates: start: 20171015, end: 20171228
  4. ALLEGRA ALLERGY [Suspect]
     Active Substance: FEXOFENADINE HYDROCHLORIDE
     Indication: DERMATITIS CONTACT
     Route: 048
     Dates: start: 20180105
  5. DIFFERIN [Concomitant]
     Active Substance: ADAPALENE
     Indication: ACNE
     Route: 065
     Dates: start: 2012

REACTIONS (1)
  - Palpitations [Recovered/Resolved]

NARRATIVE: CASE EVENT DATE: 20171227
